FAERS Safety Report 21601797 (Version 1)
Quarter: 2022Q4

REPORT INFORMATION
  Report Type: Spontaneous
  Country: US (occurrence: None)
  Receive Date: 20221115
  Receipt Date: 20221115
  Transmission Date: 20230113
  Serious: Yes (Death)
  Sender: FDA-Public Use
  Company Number: None

PATIENT
  Age: 85 Year
  Sex: Male
  Weight: 49.9 kg

DRUGS (13)
  1. DIPHENHYDRAMINE HYDROCHLORIDE [Suspect]
     Active Substance: DIPHENHYDRAMINE HYDROCHLORIDE
     Indication: Lung carcinoma cell type unspecified stage 0
     Dosage: OTHER FREQUENCY : Q 21 DAYS;?OTHER ROUTE : IV(BEFORE CHEMO);?
     Route: 042
  2. FAMOTIDINE [Suspect]
     Active Substance: FAMOTIDINE
     Indication: Lung carcinoma cell type unspecified stage 0
     Dosage: OTHER FREQUENCY : Q21 DAYS;?OTHER ROUTE : IV(BEFORE CHEMO);?
     Route: 042
  3. CARBOPLATIN [Concomitant]
     Active Substance: CARBOPLATIN
  4. DEXAMETHASONE [Concomitant]
     Active Substance: DEXAMETHASONE
  5. DIPHENHYDRAMINE [Concomitant]
     Active Substance: DIPHENHYDRAMINE
  6. ESCITALOPRAM [Concomitant]
     Active Substance: ESCITALOPRAM OXALATE
  7. FAMOTIDINE [Concomitant]
     Active Substance: FAMOTIDINE
  8. FLUOCINOLONE [Concomitant]
     Active Substance: FLUOCINOLONE
  9. MARINOL [Concomitant]
     Active Substance: DRONABINOL
  10. MUPIROCIN [Concomitant]
     Active Substance: MUPIROCIN
  11. ONDANSETRON [Concomitant]
     Active Substance: ONDANSETRON
  12. PACLITAXEL [Concomitant]
     Active Substance: PACLITAXEL
  13. SYMBICORT [Concomitant]
     Active Substance: BUDESONIDE\FORMOTEROL FUMARATE DIHYDRATE

REACTIONS (1)
  - Death [None]

NARRATIVE: CASE EVENT DATE: 20221113
